FAERS Safety Report 5948753-5 (Version None)
Quarter: 2008Q4

REPORT INFORMATION
  Report Type: 
  Country: None (occurrence: None)
  Receive Date: 20081111
  Receipt Date: 20081030
  Transmission Date: 20090506
  Serious: Yes (Hospitalization)
  Sender: FDA-Public Use
  Company Number: US-WYE-H05996308

PATIENT
  Age: 82 Year
  Sex: Female

DRUGS (2)
  1. PRISTIQ [Suspect]
     Indication: DEPRESSION
     Dosage: 50 MG - FREQUENCY UNSPECIFIED
  2. ENALAPRIL MALEATE [Suspect]
     Indication: HYPERTENSION
     Dosage: UNKNOWN

REACTIONS (1)
  - PANCREATITIS [None]
